FAERS Safety Report 6883241-3 (Version None)
Quarter: 2010Q3

REPORT INFORMATION
  Report Type: 
  Country: None (occurrence: None)
  Receive Date: 20100729
  Receipt Date: 20100726
  Transmission Date: 20110219
  Serious: Yes (Death, Hospitalization)
  Sender: FDA-Public Use
  Company Number: US-WYE-H16025310

PATIENT
  Sex: Male
  Weight: 91.6 kg

DRUGS (6)
  1. TEMSIROLIMUS [Suspect]
     Indication: PROSTATE CANCER METASTATIC
     Dosage: 25 MG (FREQUENCY NOT PROVIDED)
     Route: 065
     Dates: start: 20100405, end: 20100614
  2. BACTRIM [Concomitant]
     Indication: URINARY TRACT INFECTION
     Dosage: 1 DAILY
     Route: 048
     Dates: start: 20100424
  3. PREDNISONE [Concomitant]
     Indication: ASTHENIA
     Route: 048
     Dates: start: 20100414
  4. ATIVAN [Concomitant]
     Indication: ANXIETY
     Dosage: 0.5 MG PRN DAILY
     Route: 048
     Dates: start: 20100621
  5. MORPHINE [Concomitant]
     Indication: BONE PAIN
     Route: 048
     Dates: start: 20100122
  6. OXYCODONE [Concomitant]
     Indication: BONE PAIN
     Dosage: 5 MG AS NEEDED
     Dates: start: 20091129

REACTIONS (1)
  - HAEMORRHAGIC STROKE [None]
